FAERS Safety Report 8286893 (Version 3)
Quarter: 2014Q2

REPORT INFORMATION
  Report Type: Report from Study
  Country: IE (occurrence: IE)
  Receive Date: 20111213
  Receipt Date: 20140611
  Transmission Date: 20141212
  Serious: Yes (Death, Other)
  Sender: FDA-Public Use
  Company Number: IE-GILEAD-2011-0047675

PATIENT
  Sex: Male
  Weight: .45 kg

DRUGS (5)
  1. EMTRICITABINE/TENOFOVIR DISOPROXIL FUMARATE [Suspect]
     Indication: HIV INFECTION
     Dosage: 1 DF, QD
     Route: 064
  2. NORVIR [Concomitant]
     Dosage: 100 MG, QD
     Route: 064
  3. REYATAZ [Concomitant]
     Dosage: 300 MG, QD
     Route: 064
  4. ZOPICLONE [Concomitant]
     Route: 064
  5. METHADONE [Concomitant]
     Route: 064

REACTIONS (2)
  - Intraventricular haemorrhage [Fatal]
  - Premature delivery [Recovered/Resolved]
